FAERS Safety Report 15027154 (Version 1)
Quarter: 2018Q2

REPORT INFORMATION
  Report Type: Report from Study
  Country: ES (occurrence: ES)
  Receive Date: 20180619
  Receipt Date: 20180619
  Transmission Date: 20180711
  Serious: Yes (Hospitalization)
  Sender: FDA-Public Use
  Company Number: ES-TEVA-2018-ES-908784

PATIENT
  Age: 64 Year
  Sex: Male

DRUGS (6)
  1. 5 FU [Suspect]
     Active Substance: FLUOROURACIL
     Indication: COLORECTAL CANCER METASTATIC
     Route: 040
     Dates: start: 20140603, end: 20140603
  2. LEUCOVORIN. [Suspect]
     Active Substance: LEUCOVORIN
     Indication: COLORECTAL CANCER METASTATIC
     Route: 041
     Dates: start: 20140603, end: 20140603
  3. AFLIBERCEPT [Suspect]
     Active Substance: AFLIBERCEPT
     Indication: COLORECTAL CANCER METASTATIC
     Route: 041
     Dates: start: 20140603, end: 20140603
  4. 5 FU [Suspect]
     Active Substance: FLUOROURACIL
     Route: 041
     Dates: start: 20140603, end: 20140603
  5. SEROTONINA [Concomitant]
     Route: 065
  6. IRINOTECAN [Suspect]
     Active Substance: IRINOTECAN
     Indication: COLORECTAL CANCER METASTATIC
     Route: 041
     Dates: start: 20140603, end: 20140603

REACTIONS (9)
  - Asthenia [Recovered/Resolved]
  - Vomiting [Recovered/Resolved]
  - Back pain [Recovered/Resolved]
  - Rectal haemorrhage [Recovered/Resolved]
  - Dysphagia [Recovered/Resolved]
  - Nausea [Recovered/Resolved]
  - Diarrhoea [Recovered/Resolved]
  - Nausea [Recovered/Resolved]
  - Vomiting [Recovered/Resolved]

NARRATIVE: CASE EVENT DATE: 20140603
